FAERS Safety Report 11047037 (Version 2)
Quarter: 2015Q2

REPORT INFORMATION
  Report Type: Report from Study
  Country: JP (occurrence: JP)
  Receive Date: 20150420
  Receipt Date: 20150514
  Transmission Date: 20150821
  Serious: Yes (Other)
  Sender: FDA-Public Use
  Company Number: JP-SHIONOGI, INC-2015000351

PATIENT
  Age: 14 Year
  Sex: Male
  Weight: 58 kg

DRUGS (9)
  1. VANCOMYCIN [Suspect]
     Active Substance: VANCOMYCIN
     Indication: PYOMYOSITIS
     Route: 065
     Dates: start: 20141121, end: 20141125
  2. FRAGMIN [Concomitant]
     Active Substance: DALTEPARIN SODIUM
     Indication: PROPHYLAXIS
     Route: 065
     Dates: end: 20141213
  3. CIPROXAN                           /00697202/ [Concomitant]
     Active Substance: CIPROFLOXACIN
     Indication: PYOMYOSITIS
     Dosage: 300 MG, QID
     Route: 065
     Dates: start: 20141124, end: 20141230
  4. FINIBAX [Suspect]
     Active Substance: DORIPENEM MONOHYDRATE
     Indication: PYOMYOSITIS
     Route: 041
     Dates: start: 20141122, end: 20141124
  5. AMIKACIN SULFATE. [Suspect]
     Active Substance: AMIKACIN SULFATE
     Indication: PYOMYOSITIS
     Route: 065
     Dates: start: 20141122, end: 20141126
  6. VICCLOX                            /00587301/ [Suspect]
     Active Substance: ACYCLOVIR SODIUM
     Indication: PROPHYLAXIS
     Dosage: 300 MG, BID
     Route: 065
  7. MINOCYCLINE HYDROCHLORIDE. [Concomitant]
     Active Substance: MINOCYCLINE HYDROCHLORIDE
     Indication: PYOMYOSITIS
     Dosage: 100 MG, BID
     Route: 065
     Dates: start: 20141124, end: 20141230
  8. FUNGUARD [Suspect]
     Active Substance: MICAFUNGIN SODIUM
     Indication: SYSTEMIC MYCOSIS
     Dosage: 60 MG, QD
     Route: 065
  9. NEUTROGIN [Concomitant]
     Active Substance: LENOGRASTIM
     Indication: NEUTROPENIA
     Route: 065
     Dates: start: 20141118, end: 20141226

REACTIONS (2)
  - Hepatic function abnormal [Recovered/Resolved]
  - Blister [Recovered/Resolved]

NARRATIVE: CASE EVENT DATE: 20141123
